FAERS Safety Report 17765692 (Version 1)
Quarter: 2020Q2

REPORT INFORMATION
  Report Type: Spontaneous
  Country: US (occurrence: US)
  Receive Date: 20200510
  Receipt Date: 20200510
  Transmission Date: 20200714
  Serious: Yes (Disabling)
  Sender: FDA-Public Use
  Company Number: None

PATIENT
  Age: 36 Year
  Sex: Male
  Weight: 69.75 kg

DRUGS (2)
  1. REXULTI [Suspect]
     Active Substance: BREXPIPRAZOLE
     Indication: DEPRESSION
     Route: 048
     Dates: start: 20180110, end: 20180815
  2. WELLBUTRIN [Concomitant]
     Active Substance: BUPROPION HYDROCHLORIDE

REACTIONS (12)
  - Headache [None]
  - Fatigue [None]
  - Nausea [None]
  - Depressed mood [None]
  - Discomfort [None]
  - Withdrawal syndrome [None]
  - Cognitive disorder [None]
  - Confusional state [None]
  - Suicidal ideation [None]
  - Quality of life decreased [None]
  - Near death experience [None]
  - Feeling abnormal [None]

NARRATIVE: CASE EVENT DATE: 20180815
